FAERS Safety Report 6145384-1 (Version None)
Quarter: 2009Q2

REPORT INFORMATION
  Report Type: 
  Country: None (occurrence: None)
  Receive Date: 20090402
  Receipt Date: 20090323
  Transmission Date: 20091009
  Serious: Yes (Hospitalization)
  Sender: FDA-Public Use
  Company Number: KV200900420

PATIENT
  Age: 41 Year
  Sex: Male

DRUGS (4)
  1. MORPHINE SULFATE [Suspect]
     Indication: BACK PAIN
     Dosage: 100 MG, BID, ORAL
     Route: 048
     Dates: start: 20080701, end: 20080901
  2. MORPHINE SULFATE [Suspect]
     Indication: BACK PAIN
     Dosage: 60 MG, TID, ORAL
     Route: 048
     Dates: start: 20080701, end: 20080901
  3. OXYCODONE HCL [Concomitant]
  4. KLONOPIN [Concomitant]

REACTIONS (3)
  - HALLUCINATION [None]
  - INSOMNIA [None]
  - PARANOIA [None]
